FAERS Safety Report 6544076-4 (Version None)
Quarter: 2010Q1

REPORT INFORMATION
  Report Type: 
  Country: None (occurrence: None)
  Receive Date: 20100120
  Receipt Date: 20081219
  Transmission Date: 20100710
  Serious: Yes (Hospitalization, Other)
  Sender: FDA-Public Use
  Company Number: SI-PFIZER INC-2008155091

PATIENT
  Age: 3 Hour
  Sex: Male

DRUGS (1)
  1. METHYLPREDNISOLONE AND METHYLPREDNISOLONE ACETATE AND METHYLPREDNISOLO [Suspect]
     Indication: CROHN'S DISEASE
     Dosage: UNK MG, UNK

REACTIONS (7)
  - ADRENAL SUPPRESSION [None]
  - ANURIA [None]
  - DRUG EXPOSURE DURING PREGNANCY [None]
  - HYPOGLYCAEMIA [None]
  - HYPOTENSION [None]
  - METABOLIC ACIDOSIS [None]
  - NEONATAL RESPIRATORY DISTRESS SYNDROME [None]
